FAERS Safety Report 8022057-1 (Version None)
Quarter: 2012Q1

REPORT INFORMATION
  Report Type: 
  Country: None (occurrence: None)
  Receive Date: 20120104
  Receipt Date: 20111227
  Transmission Date: 20120608
  Serious: Yes (Other)
  Sender: FDA-Public Use
  Company Number: PHHY2011CA113636

PATIENT
  Age: 51 Year
  Sex: Female

DRUGS (1)
  1. CLOZAPINE [Suspect]
     Indication: SCHIZOPHRENIA, PARANOID TYPE
     Dosage: 925 MG, UNK

REACTIONS (9)
  - HYPERTENSION [None]
  - WEIGHT DECREASED [None]
  - GENERAL PHYSICAL HEALTH DETERIORATION [None]
  - CATECHOLAMINES URINE INCREASED [None]
  - ANTIPSYCHOTIC DRUG LEVEL INCREASED [None]
  - PSEUDOPHAEOCHROMOCYTOMA [None]
  - TACHYCARDIA [None]
  - ANXIETY [None]
  - DIZZINESS [None]
